FAERS Safety Report 7391561-1 (Version None)
Quarter: 2011Q2

REPORT INFORMATION
  Report Type: 
  Country: None (occurrence: None)
  Receive Date: 20110404
  Receipt Date: 20110322
  Transmission Date: 20111010
  Serious: Yes (Other)
  Sender: FDA-Public Use
  Company Number: PHHY2011US23274

PATIENT
  Sex: Female

DRUGS (6)
  1. DIOVAN [Suspect]
     Dosage: 160 MG, QD
  2. ABETALOL [Concomitant]
     Dosage: UNK
  3. CENTRUM [Concomitant]
     Dosage: UNK
  4. VITAMIN B-12 [Concomitant]
     Dosage: UNK
  5. VITAMIN K TAB [Concomitant]
     Dosage: 10 MG, UNK
  6. VITAMIN D [Concomitant]
     Dosage: UNK

REACTIONS (6)
  - CONTUSION [None]
  - RHINALGIA [None]
  - LOSS OF CONSCIOUSNESS [None]
  - LIMB INJURY [None]
  - FATIGUE [None]
  - FACE INJURY [None]
